FAERS Safety Report 9258673 (Version 1)
Quarter: 2013Q2

REPORT INFORMATION
  Report Type: Spontaneous
  Country: US (occurrence: None)
  Receive Date: 20130425
  Receipt Date: 20130425
  Transmission Date: 20140414
  Serious: Yes (Other)
  Sender: FDA-Public Use
  Company Number: None

PATIENT
  Age: 59 Year
  Sex: Male
  Weight: 92.53 kg

DRUGS (1)
  1. SULFAMETHOXAZOLE [Suspect]
     Indication: URINARY TRACT INFECTION
     Dosage: 2 DAILY PO
     Dates: start: 20130422, end: 20130423

REACTIONS (7)
  - Hypersensitivity [None]
  - Arthralgia [None]
  - Dyspnoea [None]
  - Nausea [None]
  - Diarrhoea [None]
  - Myalgia [None]
  - Tendon pain [None]
